FAERS Safety Report 4879078-7 (Version None)
Quarter: 2006Q1

REPORT INFORMATION
  Report Type: 
  Country: None (occurrence: None)
  Receive Date: 20060111
  Receipt Date: 20060111
  Transmission Date: 20060701
  Serious: Yes (Hospitalization)
  Sender: FDA-Public Use
  Company Number: None

PATIENT
  Age: 54 Year
  Sex: Male
  Weight: 91.3 kg

DRUGS (1)
  1. STAVUDINE [Suspect]
     Indication: HIV INFECTION
     Dosage: 80MG,  40MG BID, ORAL
     Route: 048
     Dates: start: 20050105, end: 20051006

REACTIONS (2)
  - BLOOD BILIRUBIN INCREASED [None]
  - HEPATIC ENZYME INCREASED [None]
